FAERS Safety Report 5802486-4 (Version None)
Quarter: 2008Q3

REPORT INFORMATION
  Report Type: 
  Country: None (occurrence: None)
  Receive Date: 20080701
  Receipt Date: 20071029
  Transmission Date: 20090109
  Serious: Yes (Other)
  Sender: FDA-Public Use
  Company Number: 07-002189

PATIENT
  Age: 53 Year
  Sex: Female

DRUGS (8)
  1. LOESTRIN 21 1/20 [Suspect]
     Dosage: 20/1000UG, ORAL
     Route: 048
  2. NORDETTE-21 [Suspect]
     Dosage: ORAL
     Route: 048
  3. ACTIVELLA [Suspect]
  4. PREMARIN [Suspect]
     Indication: HORMONE REPLACEMENT THERAPY
  5. PREMARIN [Suspect]
  6. PREMPHASE (PREMARIN;CYCRIN 14/14) [Suspect]
  7. PREMPRO [Suspect]
     Indication: HORMONE REPLACEMENT THERAPY
  8. PROVERA [Suspect]

REACTIONS (1)
  - BREAST CANCER [None]
